FAERS Safety Report 17454927 (Version 1)
Quarter: 2020Q1

REPORT INFORMATION
  Report Type: Spontaneous
  Country: ES (occurrence: ES)
  Receive Date: 20200225
  Receipt Date: 20200225
  Transmission Date: 20200409
  Serious: Yes (Other)
  Sender: FDA-Public Use
  Company Number: ES-TEVA-2020-ES-1191442

PATIENT
  Age: 63 Year
  Sex: Female
  Weight: 61.5 kg

DRUGS (7)
  1. ACICLOVIR (201A) [Suspect]
     Active Substance: ACYCLOVIR
     Indication: PROPHYLAXIS
     Dosage: 1 CADA 12 HORAS
     Route: 048
     Dates: start: 20190426, end: 20190516
  2. OMEPRAZOL (2141A) [Suspect]
     Active Substance: OMEPRAZOLE
     Indication: PROPHYLAXIS
     Dosage: 20 MILLIGRAM
     Route: 048
     Dates: start: 20190426, end: 20190516
  3. BORTEZOMIB (2928A) [Suspect]
     Active Substance: BORTEZOMIB
     Indication: PLASMA CELL MYELOMA
     Dosage: 2.5 MILLIGRAM
     Route: 058
     Dates: start: 20190426, end: 20190603
  4. CLEXANE 4.000 UI (40 MG)/ 0,4 ML  SOLUCION INYECTABLE EN JERINGA PRECA [Suspect]
     Active Substance: ENOXAPARIN SODIUM
     Indication: PROPHYLAXIS
     Dosage: 40 MILLIGRAM
     Route: 058
     Dates: start: 20190426, end: 20190507
  5. REVLIMID [Suspect]
     Active Substance: LENALIDOMIDE
     Indication: PLASMA CELL MYELOMA
     Dosage: 25 MILLIGRAM
     Route: 048
     Dates: start: 20190426, end: 20190516
  6. MEZAVANT 1.200 MG COMPRIMIDOS DE LIBERACION PROLONGADA GASTRORRESISTEN [Concomitant]
     Indication: COLITIS ULCERATIVE
     Dosage: 2.4 MILLIGRAM
     Route: 048
     Dates: start: 20110601
  7. DEXAMETASONA (722A) [Suspect]
     Active Substance: DEXAMETHASONE
     Indication: PLASMA CELL MYELOMA
     Dosage: 20 MILLIGRAM
     Route: 048
     Dates: start: 20190426, end: 20190507

REACTIONS (1)
  - Target skin lesion [Recovered/Resolved]

NARRATIVE: CASE EVENT DATE: 20190512
